FAERS Safety Report 5510148-6 (Version None)
Quarter: 2007Q4

REPORT INFORMATION
  Report Type: 
  Country: None (occurrence: None)
  Receive Date: 20071108
  Receipt Date: 20071105
  Transmission Date: 20080405
  Serious: Yes (Hospitalization, Other)
  Sender: FDA-Public Use
  Company Number: ES-BRISTOL-MYERS SQUIBB COMPANY-13964416

PATIENT
  Age: 39 Year
  Sex: Male

DRUGS (4)
  1. REYATAZ [Suspect]
     Indication: HIV INFECTION
     Route: 048
     Dates: start: 20061212, end: 20071003
  2. RITONAVIR [Suspect]
     Indication: HIV INFECTION
     Dates: start: 20061212, end: 20071003
  3. KIVEXA [Concomitant]
     Dosage: INITIAL DOSE FROM 12-DEC-2006 TO 03-OCT-2007 AND RESTARTED ON 23-OCT-2007.
     Route: 048
     Dates: start: 20061212
  4. SUSTIVA [Concomitant]
     Dates: start: 20071023

REACTIONS (2)
  - CONGESTIVE CARDIOMYOPATHY [None]
  - HEPATITIS ACUTE [None]
